FAERS Safety Report 5236590-9 (Version None)
Quarter: 2007Q1

REPORT INFORMATION
  Report Type: 
  Country: None (occurrence: None)
  Receive Date: 20070208
  Receipt Date: 20070129
  Transmission Date: 20070707
  Serious: Yes (Death)
  Sender: FDA-Public Use
  Company Number: 233311

PATIENT
  Age: 15 Year
  Sex: Male
  Weight: 60 kg

DRUGS (3)
  1. NUTROPIN [Suspect]
     Indication: GROWTH HORMONE DEFICIENCY
     Dosage: 2.8 MG, 6/WEEK, SUBCUTANEOUS
     Route: 058
     Dates: start: 19930526, end: 20051025
  2. SYNTHROID [Concomitant]
  3. TESTOSTERONE ENANTHATE (TESTOSTERONE ENANTHATE) [Concomitant]

REACTIONS (2)
  - BONE MARROW TRANSPLANT [None]
  - LEUKAEMIA RECURRENT [None]
